FAERS Safety Report 8495370-1 (Version None)
Quarter: 2012Q3

REPORT INFORMATION
  Report Type: 
  Country: None (occurrence: None)
  Receive Date: 20120709
  Receipt Date: 20120702
  Transmission Date: 20120928
  Serious: Yes (Hospitalization, Other)
  Sender: FDA-Public Use
  Company Number: US-MERCK-1108USA03118

PATIENT

DRUGS (16)
  1. ESTRACE [Concomitant]
     Indication: POSTMENOPAUSE
     Dosage: 1 MG, UNK
     Route: 048
  2. ASCORBIC ACID [Concomitant]
  3. MIACALCIN [Concomitant]
  4. HYZAAR [Concomitant]
     Dosage: 50-12.5
  5. FOSAMAX [Suspect]
     Dosage: 70 MG, UNK
     Route: 048
     Dates: start: 20040521, end: 20050525
  6. FOSAMAX PLUS D [Suspect]
     Indication: OSTEOPENIA
     Dosage: 70/2800
     Route: 048
     Dates: start: 20060706, end: 20061201
  7. SYNTHROID [Concomitant]
     Indication: HYPOTHYROIDISM
     Dosage: 0.125 MG, QD
  8. PYRIDOXINE [Concomitant]
  9. VITAMIN D (UNSPECIFIED) [Concomitant]
     Dosage: 400-800
  10. PROVERA [Concomitant]
     Indication: HORMONE REPLACEMENT THERAPY
     Dosage: 2.5 MG, UNK
     Route: 048
  11. FOSAMAX [Suspect]
     Indication: OSTEOPENIA
     Dosage: 10 MG, UNK
     Route: 048
     Dates: start: 19970909, end: 20040501
  12. CHLOR-TRIMETON [Concomitant]
     Indication: SEASONAL ALLERGY
     Dosage: 8 MG, PRN
     Route: 048
  13. BONIVA [Suspect]
     Indication: OSTEOPENIA
     Dosage: 150 MG, QM
     Route: 048
     Dates: start: 20050829, end: 20091204
  14. VITAMIN E [Concomitant]
  15. ONE-A-DAY ESSENTIAL VITAMINS [Concomitant]
     Dosage: 1200 MG, QD
  16. CALCIUM (UNSPECIFIED) [Concomitant]
     Dosage: 1200-1500
     Dates: start: 19960101

REACTIONS (34)
  - VITAMIN D DECREASED [None]
  - BACK PAIN [None]
  - FEMUR FRACTURE [None]
  - TENDON DISORDER [None]
  - GASTROINTESTINAL MOTILITY DISORDER [None]
  - INTERVERTEBRAL DISC PROTRUSION [None]
  - MUSCULOSKELETAL DISCOMFORT [None]
  - DIVERTICULUM [None]
  - ALANINE AMINOTRANSFERASE INCREASED [None]
  - COLON ADENOMA [None]
  - MUSCLE STRAIN [None]
  - TACHYCARDIA [None]
  - EXOSTOSIS [None]
  - HELICOBACTER GASTRITIS [None]
  - FIBULA FRACTURE [None]
  - ABDOMINAL PAIN [None]
  - LUMBAR SPINAL STENOSIS [None]
  - ARTHRALGIA [None]
  - POLLAKIURIA [None]
  - INTERVERTEBRAL DISC DEGENERATION [None]
  - SPONDYLOLISTHESIS [None]
  - BREAST MASS [None]
  - ADENOMA BENIGN [None]
  - MUCOSAL INFLAMMATION [None]
  - CHEST PAIN [None]
  - WRIST FRACTURE [None]
  - FIBROCYSTIC BREAST DISEASE [None]
  - OSTEOPOROSIS [None]
  - NERVE ROOT COMPRESSION [None]
  - FALL [None]
  - ELECTROCARDIOGRAM ST-T CHANGE [None]
  - HYPERTENSION [None]
  - BLOOD CHOLESTEROL INCREASED [None]
  - BONE DISORDER [None]
